FAERS Safety Report 15412512 (Version 3)
Quarter: 2018Q4

REPORT INFORMATION
  Report Type: Spontaneous
  Country: US (occurrence: US)
  Receive Date: 20180921
  Receipt Date: 20181206
  Transmission Date: 20190204
  Serious: No
  Sender: FDA-Public Use
  Company Number: US-TEVA-2018-US-955674

PATIENT
  Sex: Female

DRUGS (17)
  1. NICOTINE POLACRILEX [Suspect]
     Active Substance: NICOTINE
     Indication: SMOKING CESSATION THERAPY
     Route: 065
     Dates: start: 20180914
  2. ZOLMITRIPTAN. [Concomitant]
     Active Substance: ZOLMITRIPTAN
     Indication: MIGRAINE
  3. AZELASTINE HCL [Concomitant]
     Active Substance: AZELASTINE HYDROCHLORIDE
  4. IBRATROPIUM BROMIDE/ ALBUTEROL SULFATE [Concomitant]
     Dosage: 5 MG/ 3 MG PER 3 ML
  5. LAMOTRIGINE. [Concomitant]
     Active Substance: LAMOTRIGINE
  6. FLUTICASONE PROPIONATE. [Concomitant]
     Active Substance: FLUTICASONE PROPIONATE
  7. ZINC PICOLINATE [Concomitant]
     Active Substance: ZINC PICOLINATE
  8. CITRACAL [Concomitant]
     Active Substance: CALCIUM CITRATE
     Dosage: CALCIUM 1260 MG, D3-1000 IU
  9. VITAMIN E [Concomitant]
     Active Substance: .ALPHA.-TOCOPHEROL
  10. FISH OIL [Concomitant]
     Active Substance: FISH OIL
  11. COQ10 [Concomitant]
     Active Substance: UBIDECARENONE
  12. ALPRAZOLAM. [Concomitant]
     Active Substance: ALPRAZOLAM
     Indication: ANXIETY
  13. GLUCOSAMINE W/CHONDROITIN SULFATE [Concomitant]
     Active Substance: CHONDROITIN SULFATE (BOVINE)\GLUCOSAMINE SULFATE
     Dosage: 1500 MG AND 1200 MG
  14. MAGNESIUM MALATE [Concomitant]
  15. VENTOLIN HFA [Concomitant]
     Active Substance: ALBUTEROL SULFATE
     Indication: ASTHMA
  16. LISINOPRIL. [Concomitant]
     Active Substance: LISINOPRIL
  17. HOMOCYSTE X [Concomitant]

REACTIONS (2)
  - Dizziness [Recovered/Resolved]
  - Burning sensation [Recovered/Resolved]

NARRATIVE: CASE EVENT DATE: 20180914
